FAERS Safety Report 7484474-8 (Version None)
Quarter: 2011Q2

REPORT INFORMATION
  Report Type: 
  Country: None (occurrence: None)
  Receive Date: 20110410
  Receipt Date: 20110418
  Transmission Date: 20111010
  Serious: Yes (Hospitalization)
  Sender: FDA-Public Use
  Company Number: AEUSA201100104

PATIENT
  Age: 48 Year
  Sex: Female
  Weight: 74.8435 kg

DRUGS (5)
  1. SOLU-MEDROL [Concomitant]
  2. ACETAMINOPHEN [Concomitant]
  3. THEOPHYLLINE [Concomitant]
  4. IMMUNE GLOBULIN INTRAVENOUS (HUMAN) [Suspect]
     Indication: CAPILLARY LEAK SYNDROME
     Dosage: 2000 MG, KG, QM, IV
     Route: 042
     Dates: start: 20100601
  5. BENADRYL [Concomitant]

REACTIONS (13)
  - WHITE BLOOD CELL COUNT DECREASED [None]
  - MYALGIA [None]
  - CHILLS [None]
  - ASTHENIA [None]
  - PLATELET COUNT DECREASED [None]
  - DYSPNOEA [None]
  - PYREXIA [None]
  - RENAL FAILURE [None]
  - RED BLOOD CELL COUNT DECREASED [None]
  - HEADACHE [None]
  - PULMONARY OEDEMA [None]
  - PAIN [None]
  - OVERDOSE [None]
